FAERS Safety Report 4660576-6 (Version None)
Quarter: 2005Q2

REPORT INFORMATION
  Report Type: 
  Country: None (occurrence: None)
  Receive Date: 20050512
  Receipt Date: 20050404
  Transmission Date: 20051028
  Serious: Yes (Death)
  Sender: FDA-Public Use
  Company Number: US-BRISTOL-MYERS SQUIBB COMPANY-12921011

PATIENT
  Age: 85 Year
  Sex: Male

DRUGS (7)
  1. ENKAID [Suspect]
     Indication: ARRHYTHMIA
     Dosage: START DATE: BEFORE 1994, DURATION=}10 YEARS
     Route: 048
  2. COUMADIN [Concomitant]
  3. ZOLOFT [Concomitant]
  4. VERAPAMIL [Concomitant]
  5. CAPOTEN [Concomitant]
  6. APRESOLINE [Concomitant]
  7. PREVACID [Concomitant]

REACTIONS (1)
  - DIVERTICULITIS [None]
